FAERS Safety Report 16665125 (Version 1)
Quarter: 2019Q3

REPORT INFORMATION
  Report Type: Spontaneous
  Country: DE (occurrence: DE)
  Receive Date: 20190803
  Receipt Date: 20190803
  Transmission Date: 20191004
  Serious: Yes (Congenital Anomaly, Other)
  Sender: FDA-Public Use
  Company Number: DE-ACCORD-150023

PATIENT
  Sex: Male

DRUGS (13)
  1. ASCORBIC ACID/ZINC [Concomitant]
     Indication: PRODUCT USED FOR UNKNOWN INDICATION
     Dosage: 1.3. - 15.3. GESTATIONAL WEEK
     Route: 064
     Dates: start: 20181002, end: 20190108
  2. DULCOLAX NOS [Concomitant]
     Active Substance: BISACODYL OR DOCUSATE SODIUM
     Indication: PRODUCT USED FOR UNKNOWN INDICATION
     Dosage: 1.3. - 20.4. GESTATIONAL WEEK
     Route: 064
     Dates: start: 20181002, end: 20190213
  3. ONDANSETRON [Concomitant]
     Active Substance: ONDANSETRON
     Indication: NAUSEA
     Dosage: 8 MG/D 0. - 10.1. GESTATIONAL WEEK
     Route: 064
     Dates: start: 20180922, end: 20181202
  4. METHADONE [Concomitant]
     Active Substance: METHADONE HYDROCHLORIDE
     Indication: NAUSEA
     Dosage: 0.3. - 20.4. GESTATIONAL WEEK
     Route: 064
     Dates: start: 20180925, end: 20190213
  5. FOLIC ACID. [Concomitant]
     Active Substance: FOLIC ACID
     Indication: VITAMIN SUPPLEMENTATION
     Dosage: 19.6. - 19.6. GESTATIONAL WEEK
     Route: 064
     Dates: start: 20190208, end: 20190208
  6. LEVOTHYROXINE. [Concomitant]
     Active Substance: LEVOTHYROXINE
     Indication: AUTOIMMUNE THYROIDITIS
     Dosage: 100, 1.3. - 20.4. GESTATIONAL WEEK,100 UG/D
     Route: 064
     Dates: start: 20181002, end: 20190213
  7. TAVOR [Concomitant]
     Indication: RESTLESSNESS
     Dosage: 1.3. - 9.3. GESTATIONAL WEEK
     Route: 064
     Dates: start: 20181002, end: 20181127
  8. VIGANTOLETTEN [Concomitant]
     Active Substance: CHOLECALCIFEROL
     Indication: PRODUCT USED FOR UNKNOWN INDICATION
     Dosage: 1.3. - 20.4. GESTATIONAL WEEK
     Route: 064
     Dates: start: 20181002, end: 20190213
  9. TEMOZOLOMIDE. [Suspect]
     Active Substance: TEMOZOLOMIDE
     Indication: ANAPLASTIC OLIGODENDROGLIOMA
     Dosage: 0.- 10.1.GESTATIONAL WEEK,320 MG/D 7/18 STARTING 6 CYCLES 5/28 DAYS,INITIAL 150MG/QM, THEN 200MG/QM
     Route: 064
     Dates: start: 20180922, end: 20181202
  10. SALBUTAMOL [Concomitant]
     Active Substance: ALBUTEROL
     Indication: PRODUCT USED FOR UNKNOWN INDICATION
     Dosage: 1.3. - 15.3. GESTATIONAL WEEK
     Route: 064
     Dates: start: 20181002, end: 20190108
  11. PANTOPRAZOLE [Concomitant]
     Active Substance: PANTOPRAZOLE
     Indication: PRODUCT USED FOR UNKNOWN INDICATION
     Dosage: 40 MG/D, 1.3. - 9.3. GESTATIONAL WEEK
     Route: 064
     Dates: start: 20181002, end: 20181127
  12. METOCLOPRAMIDE. [Concomitant]
     Active Substance: METOCLOPRAMIDE
     Indication: NAUSEA
     Dosage: 20 MG/D 2 SEPARATED DOSES,0. - 10.1. GESTATIONAL WEEK
     Route: 064
     Dates: start: 20180922, end: 20181202
  13. HALDOL [Concomitant]
     Active Substance: HALOPERIDOL
     Indication: ANXIETY
     Dosage: 1.3. - 9.3. GESTATIONAL WEEK
     Route: 064
     Dates: start: 20181002, end: 20181127

REACTIONS (11)
  - Microcephaly [Not Recovered/Not Resolved]
  - Hygroma colli [Not Recovered/Not Resolved]
  - Syndactyly [Not Recovered/Not Resolved]
  - Skeletal dysplasia [Not Recovered/Not Resolved]
  - Hypotelorism of orbit [Not Recovered/Not Resolved]
  - Brachydactyly [Not Recovered/Not Resolved]
  - Renal dysplasia [Not Recovered/Not Resolved]
  - Pyelocaliectasis [Not Recovered/Not Resolved]
  - Microphthalmos [Not Recovered/Not Resolved]
  - Foetal exposure during pregnancy [Unknown]
  - Adactyly [Not Recovered/Not Resolved]
